FAERS Safety Report 18871043 (Version 1)
Quarter: 2021Q1

REPORT INFORMATION
  Report Type: Other
  Country: US (occurrence: US)
  Receive Date: 20210210
  Receipt Date: 20210210
  Transmission Date: 20210420
  Serious: Yes (Other)
  Sender: FDA-Public Use
  Company Number: US-ROCHE-2764119

PATIENT

DRUGS (2)
  1. EVOFOSFAMIDE [Suspect]
     Active Substance: EVOFOSFAMIDE
     Indication: GLIOBLASTOMA
     Route: 042
  2. BEVACIZUMAB. [Suspect]
     Active Substance: BEVACIZUMAB
     Indication: GLIOBLASTOMA
     Route: 042

REACTIONS (8)
  - Neutropenia [Unknown]
  - Fatigue [Unknown]
  - Small intestinal perforation [Unknown]
  - Skin abrasion [Unknown]
  - Skin ulcer [Unknown]
  - Thrombocytopenia [Unknown]
  - Pain [Unknown]
  - Mucosal inflammation [Unknown]
